FAERS Safety Report 5411417-0 (Version None)
Quarter: 2007Q3

REPORT INFORMATION
  Report Type: 
  Country: None (occurrence: None)
  Receive Date: 20070810
  Receipt Date: 20070806
  Transmission Date: 20080115
  Serious: Yes (Life-Threatening)
  Sender: FDA-Public Use
  Company Number: SE-ASTRAZENECA-2007SE04288

PATIENT
  Age: 8639 Day
  Sex: Female

DRUGS (3)
  1. SEROQUEL [Suspect]
     Indication: ANXIETY
     Route: 048
     Dates: end: 20061202
  2. NEOVLETTA [Suspect]
     Indication: CONTRACEPTION
     Route: 048
  3. MIRTAZAPINE [Concomitant]

REACTIONS (1)
  - PULMONARY EMBOLISM [None]
